FAERS Safety Report 19715377 (Version 2)
Quarter: 2021Q3

REPORT INFORMATION
  Report Type: Spontaneous
  Country: SE (occurrence: SE)
  Receive Date: 20210818
  Receipt Date: 20210907
  Transmission Date: 20211014
  Serious: Yes (Death)
  Sender: FDA-Public Use
  Company Number: SE-BAYER-2021-194304

PATIENT
  Age: 66 Year

DRUGS (2)
  1. XOFIGO [Suspect]
     Active Substance: RADIUM RA-223 DICHLORIDE
     Dosage: UNK
     Dates: start: 20210802, end: 20210802
  2. ETORICOXIB. [Concomitant]
     Active Substance: ETORICOXIB

REACTIONS (1)
  - Acute kidney injury [Fatal]
